FAERS Safety Report 24718725 (Version 1)
Quarter: 2024Q4

REPORT INFORMATION
  Report Type: Spontaneous
  Country: HR (occurrence: HR)
  Receive Date: 20241210
  Receipt Date: 20241210
  Transmission Date: 20250115
  Serious: Yes (Death, Hospitalization, Other)
  Sender: DR REDDYS
  Company Number: HR-GERMAN-LIT/HRV/24/0018062

PATIENT
  Age: 62 Year
  Sex: Male

DRUGS (6)
  1. AZACITIDINE [Suspect]
     Active Substance: AZACITIDINE
     Indication: Chronic myelomonocytic leukaemia
     Dosage: AZA (75MG/ M2 DAYS 1-7)
  2. VENETOCLAX [Suspect]
     Active Substance: VENETOCLAX
     Indication: Chronic myelomonocytic leukaemia
     Dosage: VEN 400 MG DAILY WITH THE USUAL 100-200-400 MG THREE DAY RAMP-UP SCHEDULE
  3. ALLOPURINOL [Concomitant]
     Active Substance: ALLOPURINOL
     Indication: Product used for unknown indication
     Dosage: 300 MG OF ALLOPURINOL
  4. PANTOPRAZOLE [Concomitant]
     Active Substance: PANTOPRAZOLE
     Indication: Product used for unknown indication
  5. METFORMIN [Concomitant]
     Active Substance: METFORMIN HYDROCHLORIDE
     Indication: Product used for unknown indication
  6. FUROSEMIDE [Concomitant]
     Active Substance: FUROSEMIDE
     Indication: Product used for unknown indication

REACTIONS (2)
  - Cardiac tamponade [Fatal]
  - Cardiac arrest [Fatal]
